FAERS Safety Report 23296287 (Version 1)
Quarter: 2023Q4

REPORT INFORMATION
  Report Type: Spontaneous
  Country: US (occurrence: US)
  Receive Date: 20231214
  Receipt Date: 20231214
  Transmission Date: 20240110
  Serious: Yes (Other)
  Sender: FDA-Public Use
  Company Number: US-PFIZER INC-202101207283

PATIENT
  Age: 1 Year
  Sex: Female

DRUGS (2)
  1. TOFACITINIB CITRATE [Suspect]
     Active Substance: TOFACITINIB CITRATE
     Indication: Prophylaxis
     Dosage: TAKE 3 MG BY MOUTH 2 TIMES DAILY
     Route: 048
     Dates: start: 202107
  2. TOFACITINIB CITRATE [Suspect]
     Active Substance: TOFACITINIB CITRATE
     Indication: Juvenile idiopathic arthritis

REACTIONS (5)
  - Juvenile idiopathic arthritis [Unknown]
  - Bone hypertrophy [Unknown]
  - Arthritis [Unknown]
  - Off label use [Unknown]
  - Off label use [Unknown]

NARRATIVE: CASE EVENT DATE: 20210701
